FAERS Safety Report 24282606 (Version 1)
Quarter: 2024Q3

REPORT INFORMATION
  Report Type: Spontaneous
  Country: US (occurrence: None)
  Receive Date: 20240902
  Receipt Date: 20240902
  Transmission Date: 20241017
  Serious: Yes (Other)
  Sender: Public
  Company Number: None

PATIENT
  Age: 38 Year
  Sex: Female
  Weight: 85.5 kg

DRUGS (1)
  1. LAGEVRIO [Suspect]
     Active Substance: MOLNUPIRAVIR
     Indication: COVID-19
     Dosage: 40 CAPSULES EVERY 12 HOURS ORAL
     Route: 048
     Dates: start: 20240901

REACTIONS (1)
  - Chest pain [None]

NARRATIVE: CASE EVENT DATE: 20240902
